FAERS Safety Report 6338875-1 (Version None)
Quarter: 2009Q3

REPORT INFORMATION
  Report Type: 
  Country: None (occurrence: None)
  Receive Date: 20090903
  Receipt Date: 20090825
  Transmission Date: 20100115
  Serious: Yes (Other)
  Sender: FDA-Public Use
  Company Number: PHHY2009BR35949

PATIENT
  Sex: Male

DRUGS (2)
  1. EXELON [Suspect]
     Dosage: 9MG/5CM2
  2. EXELON [Suspect]
     Dosage: 18MG/10CM2

REACTIONS (5)
  - ABNORMAL BEHAVIOUR [None]
  - AGITATION [None]
  - DRUG INEFFECTIVE [None]
  - NIGHTMARE [None]
  - SLEEP DISORDER [None]
